FAERS Safety Report 9439629 (Version 1)
Quarter: 2013Q3

REPORT INFORMATION
  Report Type: Spontaneous
  Country: US (occurrence: US)
  Receive Date: 20130805
  Receipt Date: 20130805
  Transmission Date: 20140515
  Serious: No
  Sender: FDA-Public Use
  Company Number: US-PFIZER INC-2013222901

PATIENT
  Age: 83 Year
  Sex: Female

DRUGS (8)
  1. PROTONIX [Suspect]
     Dosage: UNK
  2. LEVAQUIN [Suspect]
     Dosage: UNK
  3. PENICILLIN V POTASSIUM [Suspect]
     Dosage: UNK
  4. VICODIN [Suspect]
     Dosage: UNK
  5. AVELOX [Suspect]
     Dosage: UNK
  6. BIAXIN [Suspect]
     Dosage: UNK
  7. KEFLEX [Suspect]
     Dosage: UNK
  8. ATELVIA [Suspect]
     Dosage: UNK

REACTIONS (1)
  - Drug hypersensitivity [Unknown]
